FAERS Safety Report 20319968 (Version 3)
Quarter: 2022Q4

REPORT INFORMATION
  Report Type: Report from Study
  Country: US (occurrence: US)
  Receive Date: 20220111
  Receipt Date: 20221028
  Transmission Date: 20230113
  Serious: Yes (Other)
  Sender: FDA-Public Use
  Company Number: US-ACADIA PHARMACEUTICALS INC.-ACA-2021-PIM-004420

PATIENT
  Sex: Male

DRUGS (11)
  1. NUPLAZID [Suspect]
     Active Substance: PIMAVANSERIN TARTRATE
     Indication: Parkinson^s disease
     Dosage: 34 MILLIGRAM, QD
     Route: 048
  2. NUPLAZID [Suspect]
     Active Substance: PIMAVANSERIN TARTRATE
     Indication: Parkinson^s disease
     Dosage: 10 MILLIGRAM, QD
     Route: 048
     Dates: start: 202111
  3. CENTRUM FORTE [Concomitant]
  4. PROSCAR [Concomitant]
     Active Substance: FINASTERIDE
  5. CARBIDOPA [Concomitant]
     Active Substance: CARBIDOPA
  6. ALLOPURINOL [Concomitant]
     Active Substance: ALLOPURINOL
  7. TYLENOL [Concomitant]
     Active Substance: ACETAMINOPHEN
  8. LEXAPRO [Concomitant]
     Active Substance: ESCITALOPRAM OXALATE
  9. MIRALAX [Concomitant]
     Active Substance: POLYETHYLENE GLYCOL 3350
  10. ADVIL [Concomitant]
     Active Substance: IBUPROFEN
  11. GABAPENTIN [Concomitant]
     Active Substance: GABAPENTIN

REACTIONS (4)
  - Hip fracture [Unknown]
  - Pain in extremity [Unknown]
  - Delusion [Unknown]
  - Fall [Unknown]

NARRATIVE: CASE EVENT DATE: 20220101
